FAERS Safety Report 7301845-0 (Version None)
Quarter: 2011Q1

REPORT INFORMATION
  Report Type: 
  Country: None (occurrence: None)
  Receive Date: 20110218
  Receipt Date: 20110215
  Transmission Date: 20110831
  Serious: Yes (Hospitalization, Other)
  Sender: FDA-Public Use
  Company Number: BR-ROCHE-735518

PATIENT
  Sex: Male
  Weight: 63 kg

DRUGS (10)
  1. TOCILIZUMAB [Suspect]
     Dosage: DATE OF LAST DOSE PRIOR TO SAE: JAN 2011
     Route: 065
  2. TOCILIZUMAB [Suspect]
     Route: 065
     Dates: start: 20101013, end: 20101013
  3. POTASSIUM [Concomitant]
  4. ASCORBIC ACID [Concomitant]
  5. IRON [Concomitant]
  6. RITUXIMAB [Suspect]
     Indication: RHEUMATOID ARTHRITIS
     Dosage: FORM: INFUSION
     Route: 065
     Dates: start: 20091215, end: 20100101
  7. CALCIUM BICARBONATE [Concomitant]
     Dosage: TDD: 4 SPOONS /DAY
  8. TOCILIZUMAB [Suspect]
     Indication: RHEUMATOID ARTHRITIS
     Dosage: FORM: INFUSION
     Route: 065
     Dates: start: 20100915, end: 20100915
  9. PREDNISONE [Concomitant]
     Indication: PAIN
  10. ADEROGIL D3 [Concomitant]

REACTIONS (5)
  - SPLENOMEGALY [None]
  - LEUKOPENIA [None]
  - VARICES OESOPHAGEAL [None]
  - PLATELET COUNT DECREASED [None]
  - RHEUMATOID ARTHRITIS [None]
